FAERS Safety Report 5759206-1 (Version None)
Quarter: 2008Q2

REPORT INFORMATION
  Report Type: 
  Country: None (occurrence: None)
  Receive Date: 20080604
  Receipt Date: 20080527
  Transmission Date: 20081010
  Serious: Yes (Life-Threatening, Hospitalization, Disabling)
  Sender: FDA-Public Use
  Company Number: AU-GENENTECH-260495

PATIENT
  Sex: Female
  Weight: 63.5 kg

DRUGS (6)
  1. APOMAB (PRO95780) [Suspect]
     Indication: NON-SMALL CELL LUNG CANCER
     Dosage: 630 UNK, UNK
     Route: 042
     Dates: start: 20071211
  2. AVASTIN [Suspect]
     Indication: NON-SMALL CELL LUNG CANCER
     Dosage: 950 UNK, UNK
     Route: 042
     Dates: start: 20071211
  3. PACLITAXEL [Suspect]
     Indication: NON-SMALL CELL LUNG CANCER
     Dosage: 330 UNK, UNK
     Route: 042
     Dates: start: 20071211
  4. CARBOPLATIN [Suspect]
     Indication: NON-SMALL CELL LUNG CANCER
     Dosage: 615 UNK, UNK
     Route: 042
     Dates: start: 20071211
  5. DEXAMETHASONE TAB [Concomitant]
     Indication: ANTIINFLAMMATORY THERAPY
     Dates: start: 20080430
  6. CLEXANE [Concomitant]
     Indication: ANTICOAGULANT THERAPY
     Dates: start: 20080430

REACTIONS (1)
  - INFARCTION [None]
